FAERS Safety Report 5778904-7 (Version None)
Quarter: 2008Q2

REPORT INFORMATION
  Report Type: 
  Country: None (occurrence: None)
  Receive Date: 20080619
  Receipt Date: 20080609
  Transmission Date: 20081010
  Serious: Yes (Death, Other)
  Sender: FDA-Public Use
  Company Number: US-MERCK-0803USA04626

PATIENT
  Age: 17 Year
  Sex: Male
  Weight: 60 kg

DRUGS (7)
  1. SINGULAIR [Suspect]
     Indication: ASTHMA
     Route: 048
     Dates: end: 20071002
  2. SINGULAIR [Suspect]
     Indication: RHINITIS ALLERGIC
     Route: 048
     Dates: end: 20071002
  3. ALBUTEROL [Concomitant]
     Route: 065
  4. PROVENTIL [Concomitant]
     Route: 065
  5. ADVAIR DISKUS 100/50 [Concomitant]
     Route: 065
  6. SINGULAIR [Suspect]
     Route: 047
     Dates: start: 20030101
  7. SINGULAIR [Suspect]
     Route: 047
     Dates: start: 20030101

REACTIONS (5)
  - ANXIETY [None]
  - COMPLETED SUICIDE [None]
  - MOOD ALTERED [None]
  - SUICIDAL IDEATION [None]
  - TREMOR [None]
